FAERS Safety Report 5174850-0 (Version None)
Quarter: 2006Q4

REPORT INFORMATION
  Report Type: 
  Country: None (occurrence: None)
  Receive Date: 20061214
  Receipt Date: 20060603
  Transmission Date: 20070319
  Serious: No
  Sender: FDA-Public Use
  Company Number: US-AMGEN-KDL181818

PATIENT
  Sex: Female

DRUGS (1)
  1. ENBREL [Suspect]
     Indication: JUVENILE ARTHRITIS
     Route: 058
     Dates: start: 20030501

REACTIONS (7)
  - BRONCHITIS [None]
  - CLOSTRIDIAL INFECTION [None]
  - DIARRHOEA [None]
  - FEELING HOT AND COLD [None]
  - HEADACHE [None]
  - KIDNEY INFECTION [None]
  - NASOPHARYNGITIS [None]
